FAERS Safety Report 13577910 (Version 2)
Quarter: 2017Q2

REPORT INFORMATION
  Report Type: Spontaneous
  Country: JP (occurrence: JP)
  Receive Date: 20170524
  Receipt Date: 20170622
  Transmission Date: 20170830
  Serious: Yes (Hospitalization)
  Sender: FDA-Public Use
  Company Number: JP-PFIZER INC-2006007946

PATIENT
  Age: 76 Year
  Sex: Female

DRUGS (7)
  1. RESPLEN [Concomitant]
     Active Substance: EPRAZINONE
     Dosage: UNK
     Dates: start: 20050311, end: 20050311
  2. LINCOCIN [Suspect]
     Active Substance: LINCOMYCIN
     Indication: PHARYNGITIS
  3. CEFZON /01130201/ [Concomitant]
     Dosage: UNK
     Dates: start: 20050311, end: 20050311
  4. MAROSIN [Concomitant]
     Dosage: UNK
     Dates: start: 20050311, end: 20050311
  5. CABAGIN /00246401/ [Concomitant]
     Dosage: UNK
     Dates: start: 20050311, end: 20050311
  6. LINCOCIN [Suspect]
     Active Substance: LINCOMYCIN
     Indication: UPPER RESPIRATORY TRACT INFECTION
     Dosage: 1 G, 1X/DAY
     Dates: start: 20050311, end: 20050311
  7. ACETYLCHOLINE CHLORIDE [Concomitant]
     Active Substance: ACETYLCHOLINE CHLORIDE
     Indication: UPPER RESPIRATORY TRACT INFECTION
     Dosage: UNK

REACTIONS (1)
  - Acute generalised exanthematous pustulosis [Recovered/Resolved]

NARRATIVE: CASE EVENT DATE: 20050313
